FAERS Safety Report 5675527-5 (Version None)
Quarter: 2008Q2

REPORT INFORMATION
  Report Type: 
  Country: None (occurrence: None)
  Receive Date: 20080311
  Receipt Date: 20070814
  Transmission Date: 20081010
  Serious: Yes (Other)
  Sender: FDA-Public Use
  Company Number: PHEH2007US11125

PATIENT
  Age: 20 Year
  Sex: Female

DRUGS (1)
  1. TRILEPTAL [Suspect]
     Indication: AFFECTIVE DISORDER
     Dosage: 150 MG, QD
     Dates: start: 20070501, end: 20070501

REACTIONS (6)
  - CONTUSION [None]
  - EPISTAXIS [None]
  - HAEMORRHAGE URINARY TRACT [None]
  - MOUTH HAEMORRHAGE [None]
  - THROMBOCYTOPENIA [None]
  - VAGINAL HAEMORRHAGE [None]
